FAERS Safety Report 10543706 (Version 1)
Quarter: 2014Q4

REPORT INFORMATION
  Report Type: Spontaneous
  Country: US (occurrence: None)
  Receive Date: 20141023
  Receipt Date: 20141023
  Transmission Date: 20150529
  Serious: Yes (Death)
  Sender: FDA-Public Use
  Company Number: 1713747-2014-999159

PATIENT
  Age: 63 Year
  Sex: Male
  Weight: 75.75 kg

DRUGS (4)
  1. LIBERTY CYCLER TUBING [Concomitant]
  2. DELFLEX [Suspect]
     Active Substance: CALCIUM CHLORIDE\DEXTROSE MONOHYDRATE\MAGNESIUM CHLORIDE\SODIUM CHLORIDE\SODIUM LACTATE
     Indication: CHRONIC KIDNEY DISEASE
     Dosage: PERITONEAL DIALYSIS
  3. DELFLEX [Suspect]
     Active Substance: CALCIUM CHLORIDE\DEXTROSE MONOHYDRATE\MAGNESIUM CHLORIDE\SODIUM CHLORIDE\SODIUM LACTATE
     Indication: CHRONIC KIDNEY DISEASE
     Dosage: PERITONEAL DIALYSIS
  4. LIBERTY CYCLER [Concomitant]
     Active Substance: DEVICE

REACTIONS (2)
  - Cardiac disorder [None]
  - Renal failure [None]

NARRATIVE: CASE EVENT DATE: 20140917
